FAERS Safety Report 13927594 (Version 1)
Quarter: 2017Q3

REPORT INFORMATION
  Report Type: Spontaneous
  Country: US (occurrence: US)
  Receive Date: 20170831
  Receipt Date: 20170831
  Transmission Date: 20171127
  Serious: Yes (Other)
  Sender: FDA-Public Use
  Company Number: None

PATIENT
  Sex: Male
  Weight: 15.75 kg

DRUGS (1)
  1. FERROUS SULFATE. [Suspect]
     Active Substance: FERROUS SULFATE
     Indication: ANAEMIA
     Dosage: ?          QUANTITY:3 2.5ML;?
     Route: 048
     Dates: start: 20161015, end: 20161231

REACTIONS (5)
  - Vomiting [None]
  - Faeces discoloured [None]
  - Tooth discolouration [None]
  - Gastric disorder [None]
  - Intentional product use issue [None]

NARRATIVE: CASE EVENT DATE: 20161021
